FAERS Safety Report 24449852 (Version 1)
Quarter: 2024Q4

REPORT INFORMATION
  Report Type: Report from Study
  Country: RU (occurrence: RU)
  Receive Date: 20241017
  Receipt Date: 20241017
  Transmission Date: 20250114
  Serious: Yes (Other)
  Sender: NOVARTIS
  Company Number: RU-002147023-NVSC2024RU202110

PATIENT
  Age: 41 Year
  Sex: Male

DRUGS (2)
  1. DABRAFENIB [Suspect]
     Active Substance: DABRAFENIB
     Indication: Product used for unknown indication
     Dosage: 150 MG, BID
     Route: 048
     Dates: start: 202308
  2. TRAMETINIB [Suspect]
     Active Substance: TRAMETINIB
     Indication: Product used for unknown indication
     Dosage: 2 MG, QD
     Route: 048
     Dates: start: 202308

REACTIONS (5)
  - Myosclerosis [Recovering/Resolving]
  - Lymphadenopathy [Recovering/Resolving]
  - Haemangioma of liver [Recovering/Resolving]
  - Sarcoid-like reaction [Recovering/Resolving]
  - Bone density increased [Recovering/Resolving]

NARRATIVE: CASE EVENT DATE: 20231101
